FAERS Safety Report 8002692-7 (Version None)
Quarter: 2011Q4

REPORT INFORMATION
  Report Type: 
  Country: None (occurrence: None)
  Receive Date: 20111220
  Receipt Date: 20111205
  Transmission Date: 20120403
  Serious: Yes (Hospitalization, Other)
  Sender: FDA-Public Use
  Company Number: 2011P1013934

PATIENT
  Age: 16 Year
  Sex: Female

DRUGS (1)
  1. PREDNISONE [Suspect]
     Indication: HODGKIN'S DISEASE

REACTIONS (6)
  - HALLUCINATION [None]
  - PARANOIA [None]
  - CONFUSIONAL STATE [None]
  - DISORIENTATION [None]
  - ACUTE PSYCHOSIS [None]
  - HALLUCINATION, AUDITORY [None]
